FAERS Safety Report 6426195-6 (Version None)
Quarter: 2009Q4

REPORT INFORMATION
  Report Type: 
  Country: None (occurrence: None)
  Receive Date: 20091104
  Receipt Date: 20091030
  Transmission Date: 20100525
  Serious: Yes (Other)
  Sender: FDA-Public Use
  Company Number: FR-JNJFOC-20091008779

PATIENT
  Age: 83 Year
  Sex: Female

DRUGS (2)
  1. DURAGESIC-100 [Suspect]
     Indication: DRUG USE FOR UNKNOWN INDICATION
     Route: 062
  2. TIORFAN [Suspect]
     Indication: DIARRHOEA
     Route: 065

REACTIONS (2)
  - HALLUCINATION, VISUAL [None]
  - WRONG TECHNIQUE IN DRUG USAGE PROCESS [None]
